FAERS Safety Report 8241800-X (Version None)
Quarter: 2012Q1

REPORT INFORMATION
  Report Type: 
  Country: None (occurrence: None)
  Receive Date: 20120328
  Receipt Date: 20120322
  Transmission Date: 20120608
  Serious: Yes (Other)
  Sender: FDA-Public Use
  Company Number: US-AMGEN-USASP2012018764

PATIENT
  Age: 86 Year
  Sex: Female

DRUGS (2)
  1. PERCOCET [Concomitant]
     Indication: BACK PAIN
     Dosage: UNK
  2. PROLIA [Suspect]
     Indication: OSTEOPOROSIS POSTMENOPAUSAL
     Dosage: UNK UNK, Q6MO
     Dates: start: 20111027

REACTIONS (11)
  - OEDEMA PERIPHERAL [None]
  - SKIN BURNING SENSATION [None]
  - RASH ERYTHEMATOUS [None]
  - HYPERAESTHESIA [None]
  - LIPOSUCTION [None]
  - HYPOAESTHESIA [None]
  - RASH [None]
  - GINGIVAL BLEEDING [None]
  - PARAESTHESIA [None]
  - PLASTIC SURGERY [None]
  - BACK PAIN [None]
